FAERS Safety Report 15212909 (Version 2)
Quarter: 2018Q3

REPORT INFORMATION
  Report Type: Report from Study
  Country: FR (occurrence: FR)
  Receive Date: 20180730
  Receipt Date: 20180815
  Transmission Date: 20181010
  Serious: Yes (Other)
  Sender: FDA-Public Use
  Company Number: FR-TEVA-2018-FR-931231

PATIENT
  Age: 56 Year
  Sex: Female

DRUGS (2)
  1. TACROLIMUS. [Suspect]
     Active Substance: TACROLIMUS
     Indication: RENAL TRANSPLANT
     Dosage: 4 MILLIGRAM DAILY; BY DAY
     Route: 048
     Dates: start: 20160114
  2. CELLCEPT [Concomitant]
     Active Substance: MYCOPHENOLATE MOFETIL\MYCOPHENOLATE MOFETIL HYDROCHLORIDE
     Indication: RENAL TRANSPLANT
     Dosage: 500 MILLIGRAM DAILY; BY DAY
     Route: 048
     Dates: start: 20140518, end: 20161025

REACTIONS (1)
  - Lip squamous cell carcinoma [Recovered/Resolved]

NARRATIVE: CASE EVENT DATE: 20160308
